FAERS Safety Report 10869379 (Version 2)
Quarter: 2015Q2

REPORT INFORMATION
  Report Type: Spontaneous
  Country: ES (occurrence: ES)
  Receive Date: 20150226
  Receipt Date: 20150416
  Transmission Date: 20150821
  Serious: Yes (Hospitalization, Other)
  Sender: FDA-Public Use
  Company Number: ES-AMGEN-ESPSP2015016226

PATIENT
  Age: 83 Year
  Sex: Female

DRUGS (5)
  1. INSULIN [Concomitant]
     Active Substance: INSULIN NOS
     Indication: TYPE 1 DIABETES MELLITUS
  2. FUROSEMIDE. [Concomitant]
     Active Substance: FUROSEMIDE
  3. PREDNISONE. [Concomitant]
     Active Substance: PREDNISONE
     Dosage: 5 MG, QD
  4. PROLIA [Suspect]
     Active Substance: DENOSUMAB
     Indication: OSTEOPOROSIS
     Dosage: 60 MG, Q6MO
     Route: 065
  5. OLMESARTAN [Concomitant]
     Active Substance: OLMESARTAN

REACTIONS (9)
  - Gait disturbance [Recovering/Resolving]
  - Discomfort [Recovering/Resolving]
  - Gaze palsy [Recovering/Resolving]
  - Generalised tonic-clonic seizure [Recovered/Resolved]
  - Hypocalcaemia [Recovering/Resolving]
  - Asthenia [Recovering/Resolving]
  - Musculoskeletal stiffness [Recovering/Resolving]
  - Encephalopathy [Recovering/Resolving]
  - Restlessness [Recovering/Resolving]
